FAERS Safety Report 8423381-0 (Version None)
Quarter: 2012Q2

REPORT INFORMATION
  Report Type: 
  Country: None (occurrence: None)
  Receive Date: 20120608
  Receipt Date: 20120604
  Transmission Date: 20120825
  Serious: Yes (Other)
  Sender: FDA-Public Use
  Company Number: PHHY2012US048024

PATIENT
  Age: 70 Year
  Sex: Female

DRUGS (1)
  1. BUFFERIN [Suspect]
     Indication: PAIN
     Dosage: 1 DF, AT NIGHT EVERY 2 WEEK
     Route: 048

REACTIONS (5)
  - BLOOD CHOLESTEROL INCREASED [None]
  - SPINAL OSTEOARTHRITIS [None]
  - INCORRECT DRUG ADMINISTRATION DURATION [None]
  - EXPIRED DRUG ADMINISTERED [None]
  - SCOLIOSIS [None]
